FAERS Safety Report 21315395 (Version 1)
Quarter: 2022Q3

REPORT INFORMATION
  Report Type: Spontaneous
  Country: US (occurrence: None)
  Receive Date: 20220909
  Receipt Date: 20220909
  Transmission Date: 20221027
  Serious: No
  Sender: FDA-Public Use
  Company Number: US-ARIS GLOBAL-202112-2226

PATIENT
  Sex: Female

DRUGS (8)
  1. OXERVATE [Suspect]
     Active Substance: CENEGERMIN-BKBJ
     Indication: Neurotrophic keratopathy
     Route: 047
     Dates: start: 20211111
  2. ASPIRIN [Concomitant]
     Active Substance: ASPIRIN
  3. AMIODARONE HYDROCHLORIDE [Concomitant]
     Active Substance: AMIODARONE HYDROCHLORIDE
  4. METOPROLOL SUCCINATE [Concomitant]
     Active Substance: METOPROLOL SUCCINATE
  5. VITAMIN D-400 [Concomitant]
  6. RESTASIS [Concomitant]
     Active Substance: CYCLOSPORINE
  7. MURO-128 [Concomitant]
  8. DUREZOL [Concomitant]
     Active Substance: DIFLUPREDNATE

REACTIONS (2)
  - Eye pain [Unknown]
  - Lacrimation increased [Unknown]
